FAERS Safety Report 16403856 (Version 3)
Quarter: 2019Q3

REPORT INFORMATION
  Report Type: Spontaneous
  Country: JP (occurrence: JP)
  Receive Date: 20190607
  Receipt Date: 20190710
  Transmission Date: 20191004
  Serious: Yes (Hospitalization)
  Sender: FDA-Public Use
  Company Number: JP-AMGEN-JPNSP2019084439

PATIENT
  Age: 73 Year
  Sex: Female

DRUGS (64)
  1. NESP [Suspect]
     Active Substance: DARBEPOETIN ALFA
     Indication: NEPHROGENIC ANAEMIA
     Dosage: 30 MICROGRAM, Q2WK
     Route: 058
     Dates: start: 20181219
  2. NESP [Suspect]
     Active Substance: DARBEPOETIN ALFA
     Dosage: 120 MICROGRAM, Q2WK
     Route: 058
     Dates: start: 20190410, end: 20190424
  3. NESP [Suspect]
     Active Substance: DARBEPOETIN ALFA
     Dosage: 160 MICROGRAM, QD
     Route: 058
     Dates: start: 20190522
  4. ROMIPLATE [Suspect]
     Active Substance: ROMIPLOSTIM
     Dosage: 450 MICROGRAM, QD
     Route: 058
     Dates: start: 20190122, end: 20190122
  5. ROMIPLATE [Suspect]
     Active Substance: ROMIPLOSTIM
     Dosage: 470 MICROGRAM, QD
     Route: 058
     Dates: start: 20190320, end: 20190320
  6. NEORAL [Concomitant]
     Active Substance: CYCLOSPORINE
     Dosage: 50 MILLIGRAM, BID
     Route: 048
     Dates: start: 20190111
  7. NEORAL [Concomitant]
     Active Substance: CYCLOSPORINE
     Dosage: 40 MILLIGRAM, BID
     Route: 048
     Dates: start: 20190129
  8. FLUCONAZOLE. [Concomitant]
     Active Substance: FLUCONAZOLE
     Dosage: 100 MILLIGRAM, QD
     Route: 048
     Dates: start: 20181219
  9. PANTOL [PANTHENOL] [Concomitant]
     Dosage: 500 MILLIGRAM, BID
     Route: 041
     Dates: start: 20190314, end: 20190314
  10. SOLYUGEN G [Concomitant]
     Dosage: 500 MILLILITER, QD
     Route: 041
     Dates: start: 20190323, end: 20190323
  11. ROMIPLATE [Suspect]
     Active Substance: ROMIPLOSTIM
     Indication: IMMUNE THROMBOCYTOPENIC PURPURA
     Dosage: 500 MICROGRAM, QD
     Route: 058
     Dates: start: 20181219, end: 20181219
  12. ROMIPLATE [Suspect]
     Active Substance: ROMIPLOSTIM
     Dosage: 455 MICROGRAM, QD
     Route: 058
     Dates: start: 20190417, end: 20190417
  13. ROMIPLATE [Suspect]
     Active Substance: ROMIPLOSTIM
     Dosage: 435 MICROGRAM, QD
     Route: 058
     Dates: start: 20190515, end: 20190515
  14. SAMTIREL [Concomitant]
     Active Substance: ATOVAQUONE
     Dosage: 1500 MILLIGRAM, QD
     Route: 048
     Dates: start: 20181219
  15. VENILON [Concomitant]
     Active Substance: HUMAN IMMUNOGLOBULIN G
     Dosage: 20 GRAM, QD
     Route: 041
     Dates: start: 20190611
  16. ISOTONIC SODIUM CHLORIDE SOLUTION [Concomitant]
     Active Substance: SODIUM CHLORIDE
     Dosage: 20 MILLILITER
     Route: 042
     Dates: start: 20190213, end: 20190214
  17. ISOTONIC SODIUM CHLORIDE SOLUTION [Concomitant]
     Active Substance: SODIUM CHLORIDE
     Dosage: 20 MILLILITER, QD
     Route: 042
     Dates: start: 20190315, end: 20190316
  18. ISOTONIC SODIUM CHLORIDE SOLUTION [Concomitant]
     Active Substance: SODIUM CHLORIDE
     Dosage: 20 MILLILITER
     Route: 042
     Dates: start: 20190505, end: 20190505
  19. ISOTONIC SODIUM CHLORIDE SOLUTION [Concomitant]
     Active Substance: SODIUM CHLORIDE
     Dosage: 20 MILLILITER, BID
     Route: 042
     Dates: start: 20190506, end: 20190507
  20. MEROPENEM [MEROPENEM TRIHYDRATE] [Concomitant]
     Active Substance: MEROPENEM
     Dosage: 1 GRAM, BID
     Route: 041
     Dates: start: 20190323, end: 20190331
  21. NESP [Suspect]
     Active Substance: DARBEPOETIN ALFA
     Dosage: 90 MICROGRAM, Q2WK
     Route: 058
     Dates: start: 20190313, end: 20190327
  22. ROMIPLATE [Suspect]
     Active Substance: ROMIPLOSTIM
     Dosage: 450 MICROGRAM, QD
     Route: 058
     Dates: start: 20190227, end: 20190227
  23. SAMTIREL [Concomitant]
     Active Substance: ATOVAQUONE
     Dosage: 1500 MILLIGRAM, QD
     Route: 048
     Dates: start: 20190522
  24. SENNOSIDE A+B [Concomitant]
     Active Substance: SENNOSIDES A AND B
     Dosage: 24 MILLIGRAM, QD
     Route: 048
     Dates: start: 20181219
  25. FEBURIC [Concomitant]
     Active Substance: FEBUXOSTAT
     Dosage: 20 MILLIGRAM, QD
     Route: 048
     Dates: start: 20190522
  26. ISOTONIC SODIUM CHLORIDE SOLUTION [Concomitant]
     Active Substance: SODIUM CHLORIDE
     Dosage: 20 MILLILITER, BID
     Route: 042
     Dates: start: 20190306, end: 20190306
  27. ISOTONIC SODIUM CHLORIDE SOLUTION [Concomitant]
     Active Substance: SODIUM CHLORIDE
     Dosage: 60 MILLILITER
     Route: 042
     Dates: start: 20190307, end: 20190307
  28. SOLITA-T1 [Concomitant]
     Dosage: 500 MILLILITER, TID
     Route: 041
     Dates: start: 20190314, end: 20190314
  29. SOLU-CORTEF [Concomitant]
     Active Substance: HYDROCORTISONE SODIUM SUCCINATE
     Dosage: 100 MILLIGRAM, QD
     Route: 042
     Dates: start: 20190315, end: 20190315
  30. NESP [Suspect]
     Active Substance: DARBEPOETIN ALFA
     Dosage: 60 MICROGRAM, Q2WK
     Route: 058
     Dates: start: 20190130, end: 20190213
  31. NESP [Suspect]
     Active Substance: DARBEPOETIN ALFA
     Dosage: 140 MICROGRAM, QD
     Route: 058
     Dates: start: 20190508, end: 20190508
  32. KALIMATE [Concomitant]
     Active Substance: CALCIUM POLYSTYRENE SULFONATE
     Dosage: 16.2 GRAM, TID
     Route: 048
     Dates: start: 20181219
  33. XYZAL [Concomitant]
     Active Substance: LEVOCETIRIZINE DIHYDROCHLORIDE
     Dosage: 2.5 MILLIGRAM, QD
     Route: 048
     Dates: start: 20190129
  34. CEFMETAZOLE NA [Concomitant]
     Active Substance: CEFMETAZOLE
     Dosage: 1 GRAM, QD
     Route: 041
     Dates: start: 20190314, end: 20190314
  35. ROMIPLATE [Suspect]
     Active Substance: ROMIPLOSTIM
     Dosage: 500 MICROGRAM, QD
     Route: 058
     Dates: start: 20190220, end: 20190220
  36. ROMIPLATE [Suspect]
     Active Substance: ROMIPLOSTIM
     Dosage: 475 MICROGRAM, QD
     Route: 058
     Dates: start: 20190313, end: 20190313
  37. ROMIPLATE [Suspect]
     Active Substance: ROMIPLOSTIM
     Dosage: 465 MICROGRAM, QD
     Route: 058
     Dates: start: 20190327, end: 20190327
  38. ROMIPLATE [Suspect]
     Active Substance: ROMIPLOSTIM
     Dosage: 430 MICROGRAM, QWK
     Route: 058
     Dates: start: 20190502, end: 20190508
  39. TELMISARTAN. [Concomitant]
     Active Substance: TELMISARTAN
     Dosage: 40 MG, QD
     Route: 048
     Dates: start: 20190522
  40. VENILON [Concomitant]
     Active Substance: HUMAN IMMUNOGLOBULIN G
     Dosage: 20 GRAM, QD
     Route: 041
     Dates: start: 20190505, end: 20190507
  41. ROMIPLATE [Suspect]
     Active Substance: ROMIPLOSTIM
     Dosage: 400 MICROGRAM, QWK
     Route: 058
     Dates: start: 20190130, end: 20190206
  42. ROMIPLATE [Suspect]
     Active Substance: ROMIPLOSTIM
     Dosage: 460 MICROGRAM, QD
     Route: 058
     Dates: start: 20190403, end: 20190410
  43. ROMIPLATE [Suspect]
     Active Substance: ROMIPLOSTIM
     Dosage: 425 MICROGRAM, QWK
     Route: 058
     Dates: start: 20190529
  44. NEORAL [Concomitant]
     Active Substance: CYCLOSPORINE
     Dosage: 40 MILLIGRAM, BID
     Route: 048
     Dates: start: 20190522
  45. TELMISARTAN. [Concomitant]
     Active Substance: TELMISARTAN
     Dosage: 40 MILLIGRAM
     Route: 048
  46. FEBURIC [Concomitant]
     Active Substance: FEBUXOSTAT
     Dosage: 20 MILLIGRAM, QD
     Route: 048
     Dates: start: 20181219
  47. VENILON [Concomitant]
     Active Substance: HUMAN IMMUNOGLOBULIN G
     Dosage: 20 GRAM, QD
     Route: 041
     Dates: start: 20190213, end: 20190214
  48. VENILON [Concomitant]
     Active Substance: HUMAN IMMUNOGLOBULIN G
     Dosage: 20 GRAM, QD
     Route: 041
     Dates: start: 20190306, end: 20190307
  49. ISOTONIC SODIUM CHLORIDE SOLUTION [Concomitant]
     Active Substance: SODIUM CHLORIDE
     Dosage: 500 MILLILITER, QD
     Route: 041
     Dates: start: 20190430, end: 20190501
  50. TAZOPIPE [Concomitant]
     Active Substance: PIPERACILLIN SODIUM\TAZOBACTAM SODIUM
     Dosage: 4.5 GRAM, BID
     Route: 041
     Dates: start: 20190304, end: 20190311
  51. SOLITA-T1 [Concomitant]
     Dosage: 500 MILLILITER, QD
     Route: 041
     Dates: start: 20190315, end: 20190315
  52. TRANEXAMIC ACID. [Concomitant]
     Active Substance: TRANEXAMIC ACID
     Dosage: 1000 MILLIGRAM, QD
     Route: 041
     Dates: start: 20190314, end: 20190314
  53. SOLITA-T3 [Concomitant]
     Active Substance: POTASSIUM CHLORIDE\SODIUM CHLORIDE\SODIUM LACTATE
     Dosage: 500 MILLILITER, BID
     Route: 041
     Dates: start: 20190323, end: 20190323
  54. SOLITA-T3 [Concomitant]
     Active Substance: POTASSIUM CHLORIDE\SODIUM CHLORIDE\SODIUM LACTATE
     Dosage: 500 MILLILITER, QD
     Route: 041
     Dates: start: 20190324, end: 20190325
  55. ROMIPLATE [Suspect]
     Active Substance: ROMIPLOSTIM
     Dosage: 450 MICROGRAM, QD
     Route: 058
     Dates: start: 20190213, end: 20190213
  56. TELMISARTAN. [Concomitant]
     Active Substance: TELMISARTAN
     Dosage: 20 MG, QD
     Route: 048
     Dates: start: 20181219
  57. CLEXANE [Concomitant]
     Active Substance: ENOXAPARIN SODIUM
     Dosage: 2000 INTERNATIONAL UNIT, BID
     Route: 058
     Dates: start: 20190315, end: 20190319
  58. CEFOTIAM HYDROCHLORIDE [Concomitant]
     Active Substance: CEFOTIAM HYDROCHLORIDE
     Dosage: 1 GRAM, BID
     Route: 041
     Dates: start: 20190315, end: 20190320
  59. NESP [Suspect]
     Active Substance: DARBEPOETIN ALFA
     Dosage: 75 MICROGRAM, QD
     Route: 058
     Dates: start: 20190227, end: 20190227
  60. ROMIPLATE [Suspect]
     Active Substance: ROMIPLOSTIM
     Dosage: 500 MICROGRAM, QWK
     Route: 058
     Dates: start: 20181230, end: 20190114
  61. ROMIPLATE [Suspect]
     Active Substance: ROMIPLOSTIM
     Dosage: 500 MICROGRAM, QD
     Route: 058
     Dates: start: 20190306, end: 20190306
  62. NEORAL [Concomitant]
     Active Substance: CYCLOSPORINE
     Dosage: 60 MILLIGRAM, BID
     Route: 048
     Dates: start: 20181219
  63. FLUCONAZOLE. [Concomitant]
     Active Substance: FLUCONAZOLE
     Dosage: 100 MILLIGRAM, QD
     Route: 048
     Dates: start: 20190522
  64. SENNOSIDE A+B [Concomitant]
     Active Substance: SENNOSIDES A AND B
     Dosage: 24 MILLIGRAM, QD
     Route: 048
     Dates: start: 20190522

REACTIONS (1)
  - Platelet count increased [Recovered/Resolved]

NARRATIVE: CASE EVENT DATE: 20190520
